FAERS Safety Report 25439548 (Version 4)
Quarter: 2025Q3

REPORT INFORMATION
  Report Type: Report from Study
  Country: US (occurrence: US)
  Receive Date: 20250616
  Receipt Date: 20250806
  Transmission Date: 20251021
  Serious: Yes (Other)
  Sender: MYLAN
  Company Number: US-MYLANLABS-2025M1049646

PATIENT
  Age: 58 Year
  Sex: Male

DRUGS (3)
  1. SERTRALINE [Suspect]
     Active Substance: SERTRALINE HYDROCHLORIDE
     Indication: Product used for unknown indication
     Dosage: 100 MILLIGRAM, QD (ONCE A DAY)
     Dates: start: 20250424
  2. DILANTIN [Suspect]
     Active Substance: PHENYTOIN
     Indication: Seizure
     Dosage: UNK, QOD (EVERY OTHER DAY, ALTERNATING BETWEEN 300 MILLIGRAM TO 400 MILLIGRAM)
  3. PHENOBARBITAL [Suspect]
     Active Substance: PHENOBARBITAL
     Indication: Seizure
     Dosage: 64.8 MILLIGRAM, BID (TWICE DAILY)

REACTIONS (5)
  - Intentional self-injury [Unknown]
  - Abnormal behaviour [Unknown]
  - Anger [Unknown]
  - Screaming [Unknown]
  - Product substitution issue [Unknown]

NARRATIVE: CASE EVENT DATE: 20250501
